FAERS Safety Report 9393670 (Version 1)
Quarter: 2013Q3

REPORT INFORMATION
  Report Type: Spontaneous
  Country: DE (occurrence: DE)
  Receive Date: 20130710
  Receipt Date: 20130710
  Transmission Date: 20140515
  Serious: Yes (Hospitalization, Other)
  Sender: FDA-Public Use
  Company Number: DE-GLAXOSMITHKLINE-D0080332A

PATIENT
  Sex: Female
  Weight: 2.7 kg

DRUGS (2)
  1. LAMOTRIGINE [Suspect]
     Indication: EPILEPSY
     Route: 064
     Dates: start: 20070330, end: 20071218
  2. THYRONAJOD [Concomitant]
     Indication: HYPOTHYROIDISM
     Route: 064
     Dates: start: 20070330, end: 20071218

REACTIONS (5)
  - Apnoea neonatal [Recovered/Resolved]
  - Oxygen saturation decreased [Recovered/Resolved]
  - Skin discolouration [Recovered/Resolved]
  - Agitation [Recovered/Resolved]
  - Foetal exposure during pregnancy [Unknown]
